FAERS Safety Report 9026121 (Version 3)
Quarter: 2013Q1

REPORT INFORMATION
  Report Type: Spontaneous
  Country: US (occurrence: None)
  Receive Date: 20121207
  Receipt Date: 20121219
  Transmission Date: 20140127
  Serious: Yes (Other)
  Sender: FDA-Public Use
  Company Number: 2012AP004150

PATIENT
  Age: 30 Year
  Sex: Female

DRUGS (1)
  1. ALBUTEROL SULFATE [Suspect]
     Indication: WHEEZING

REACTIONS (6)
  - Urticaria [None]
  - Respiratory distress [None]
  - Wheezing [None]
  - Condition aggravated [None]
  - Erythema [None]
  - Pruritus [None]
